FAERS Safety Report 11825850 (Version 1)
Quarter: 2015Q4

REPORT INFORMATION
  Report Type: Spontaneous
  Country: GB (occurrence: GB)
  Receive Date: 20151211
  Receipt Date: 20151211
  Transmission Date: 20160305
  Serious: Yes (Disabling)
  Sender: FDA-Public Use
  Company Number: GB-TEVA-614954ACC

PATIENT
  Age: 41 Year
  Sex: Male
  Weight: 98 kg

DRUGS (9)
  1. BRICANYL [Concomitant]
     Active Substance: TERBUTALINE SULFATE
     Route: 055
     Dates: start: 20151116
  2. SALBUTAMOL [Concomitant]
     Active Substance: ALBUTEROL
     Route: 055
     Dates: start: 20151116
  3. AMITRIPTYLINE HYDROCHLORIDE. [Concomitant]
     Active Substance: AMITRIPTYLINE HYDROCHLORIDE
     Dosage: 1 DOSAGE FORMS DAILY; 1 DOSAGE FORM AT NIGHT
     Dates: start: 20151116
  4. PROCYCLIDINE [Concomitant]
     Active Substance: PROCYCLIDINE
     Dosage: 2 DOSAGE FORMS DAILY; 1 DOSAGE FORM IN THE MORNING AND EVENING
     Dates: start: 20151030
  5. HALOPERIDOL. [Suspect]
     Active Substance: HALOPERIDOL
     Dates: start: 20151121
  6. NAPROXEN. [Concomitant]
     Active Substance: NAPROXEN
     Dosage: 2 DOSAGE FORMS DAILY; 1 DOSAGE FORM IN THE MORNING AND EVENING
     Dates: start: 20151106
  7. OMEPRAZOLE. [Concomitant]
     Active Substance: OMEPRAZOLE
     Dosage: 1 DOSAGE FORMS DAILY; 1 DOSAGE FORM IN THE MORNING
     Dates: start: 20151103
  8. ARIPIPRAZOLE. [Concomitant]
     Active Substance: ARIPIPRAZOLE
     Dates: start: 20151030
  9. TRAMADOL. [Concomitant]
     Active Substance: TRAMADOL
     Dosage: 3 DOSAGE FORMS DAILY; 1 DOSAGE FORM IN THE MORNING, NOON AND EVENING
     Dates: start: 20151030, end: 20151102

REACTIONS (1)
  - Swollen tongue [Unknown]

NARRATIVE: CASE EVENT DATE: 20151121
